FAERS Safety Report 24360441 (Version 2)
Quarter: 2024Q3

REPORT INFORMATION
  Report Type: Spontaneous
  Country: HU (occurrence: HU)
  Receive Date: 20240925
  Receipt Date: 20240926
  Transmission Date: 20241016
  Serious: Yes (Other)
  Sender: ROCHE
  Company Number: HU-ROCHE-10000083771

PATIENT
  Age: 40 Year
  Sex: Female

DRUGS (2)
  1. KADCYLA [Suspect]
     Active Substance: ADO-TRASTUZUMAB EMTANSINE
     Indication: Breast cancer metastatic
     Route: 065
     Dates: start: 20240828
  2. KADCYLA [Suspect]
     Active Substance: ADO-TRASTUZUMAB EMTANSINE
     Indication: Invasive ductal breast carcinoma

REACTIONS (9)
  - Epistaxis [Unknown]
  - Haematemesis [Unknown]
  - Melaena [Unknown]
  - Pyrexia [Unknown]
  - Transaminases increased [Unknown]
  - Menstruation irregular [Unknown]
  - Ulcer [Unknown]
  - Chills [Unknown]
  - Heavy menstrual bleeding [Unknown]

NARRATIVE: CASE EVENT DATE: 20240831
